FAERS Safety Report 13969958 (Version 1)
Quarter: 2017Q3

REPORT INFORMATION
  Report Type: Spontaneous
  Country: US (occurrence: US)
  Receive Date: 20170914
  Receipt Date: 20170914
  Transmission Date: 20171128
  Serious: No
  Sender: FDA-Public Use
  Company Number: US-ASTELLAS-2017US000290

PATIENT
  Age: 85 Year
  Sex: Male

DRUGS (2)
  1. XTANDI [Suspect]
     Active Substance: ENZALUTAMIDE
     Indication: MALAISE
  2. XTANDI [Suspect]
     Active Substance: ENZALUTAMIDE
     Indication: PROSTATE CANCER
     Route: 048
     Dates: start: 20160831

REACTIONS (7)
  - Irritability [Unknown]
  - Back pain [Unknown]
  - Asthenia [Unknown]
  - Laziness [Unknown]
  - Swelling [Unknown]
  - Mental status changes [Unknown]
  - Melanocytic naevus [Recovering/Resolving]
